FAERS Safety Report 5683467-0 (Version None)
Quarter: 2008Q1

REPORT INFORMATION
  Report Type: 
  Country: None (occurrence: None)
  Receive Date: 20080326
  Receipt Date: 20080313
  Transmission Date: 20080703
  Serious: Yes (Hospitalization)
  Sender: FDA-Public Use
  Company Number: E2020-02455-SPO-DE

PATIENT
  Sex: Female

DRUGS (4)
  1. ARICEPT [Suspect]
     Dosage: ORAL
     Route: 048
  2. PANTOPRAZOLE SODIUM [Concomitant]
  3. ANTIBIOTIC (ANTIBIOTICS) [Concomitant]
  4. PLAVIX [Concomitant]

REACTIONS (1)
  - POST PROCEDURAL HAEMORRHAGE [None]
